FAERS Safety Report 16403721 (Version 1)
Quarter: 2019Q3

REPORT INFORMATION
  Report Type: Spontaneous
  Country: US (occurrence: US)
  Receive Date: 20190606
  Receipt Date: 20190606
  Transmission Date: 20191004
  Serious: Yes (Hospitalization)
  Sender: FDA-Public Use
  Company Number: None

PATIENT
  Age: 84 Year
  Sex: Female
  Weight: 58.5 kg

DRUGS (8)
  1. CALCIUM + D3 [Concomitant]
     Active Substance: CALCIUM\CHOLECALCIFEROL
  2. FASLODEX [Concomitant]
     Active Substance: FULVESTRANT
  3. ATORVASTATIN [Concomitant]
     Active Substance: ATORVASTATIN
  4. VITAMIN B6 [Concomitant]
     Active Substance: PYRIDOXINE HYDROCHLORIDE
  5. VERZENIO [Suspect]
     Active Substance: ABEMACICLIB
     Indication: BREAST CANCER
     Route: 048
     Dates: start: 20190501, end: 20190606
  6. NORVASC [Concomitant]
     Active Substance: AMLODIPINE BESYLATE
  7. FISH OIL CONCENTRATE [Concomitant]
     Active Substance: FISH OIL
  8. XGEVA [Concomitant]
     Active Substance: DENOSUMAB

REACTIONS (3)
  - Dyspnoea [None]
  - Disease progression [None]
  - Confusional state [None]

NARRATIVE: CASE EVENT DATE: 20190606
